FAERS Safety Report 25909460 (Version 1)
Quarter: 2025Q4

REPORT INFORMATION
  Report Type: Spontaneous
  Country: US (occurrence: US)
  Receive Date: 20251011
  Receipt Date: 20251011
  Transmission Date: 20260117
  Serious: Yes (Life-Threatening, Other)
  Sender: HETERO
  Company Number: US-HETERO-HET2025US05868

PATIENT
  Age: 4 Month
  Sex: Male

DRUGS (3)
  1. VIGABATRIN [Suspect]
     Active Substance: VIGABATRIN
     Indication: Infantile spasms
     Dosage: 48 MILLIGRAM/KILOGRAM, BID
     Route: 065
  2. VIGABATRIN [Suspect]
     Active Substance: VIGABATRIN
     Indication: Lissencephaly
     Dosage: 108 MILLIGRAM/KILOGRAM, TID
     Route: 065
  3. PREDNISOLONE [Concomitant]
     Active Substance: PREDNISOLONE
     Indication: Product used for unknown indication
     Dosage: UNK
     Route: 065

REACTIONS (3)
  - Condition aggravated [Unknown]
  - Respiratory failure [Unknown]
  - Hypotonia [Unknown]
